FAERS Safety Report 6236381-6 (Version None)
Quarter: 2009Q2

REPORT INFORMATION
  Report Type: 
  Country: None (occurrence: None)
  Receive Date: 20090619
  Receipt Date: 20070614
  Transmission Date: 20091009
  Serious: Yes (Other)
  Sender: FDA-Public Use
  Company Number: US-ASTRAZENECA-2006UW24474

PATIENT
  Age: 16230 Day
  Sex: Female
  Weight: 106.6 kg

DRUGS (19)
  1. SEROQUEL [Suspect]
     Indication: BIPOLAR DISORDER
     Route: 048
     Dates: start: 20040607
  2. SEROQUEL [Suspect]
     Route: 048
     Dates: end: 20060101
  3. ABILIFY [Concomitant]
     Dates: start: 20060301
  4. CLOZARIL [Concomitant]
     Dates: start: 19980601
  5. RISPERDAL [Concomitant]
  6. ZYPREXA [Concomitant]
  7. ZOLOFT [Concomitant]
  8. TRAZODONE HCL [Concomitant]
  9. METOCLOPRAMIDE [Concomitant]
     Dates: start: 20060626
  10. CYCLOBENZAPRINE [Concomitant]
     Dates: start: 20060405
  11. AVANDIA [Concomitant]
     Dosage: 4 MG-12 MG
     Dates: start: 20040825
  12. NABUMETONE [Concomitant]
     Dates: start: 20060510
  13. DIOVAN [Concomitant]
     Dates: start: 20040825
  14. HYDROCODONE-ACI [Concomitant]
     Dosage: STRENGTH 2.5-167/5
     Dates: start: 20051026
  15. ADVICOR [Concomitant]
     Dosage: 25-500 MG
     Dates: start: 20040825
  16. FOSAMAX [Concomitant]
     Dosage: 70-120 MG
     Dates: start: 20040825
  17. TAMIFLU [Concomitant]
     Dates: start: 20050202
  18. OMACOR [Concomitant]
     Dates: start: 20061216
  19. ZETIA [Concomitant]
     Route: 048
     Dates: start: 20061216

REACTIONS (2)
  - DIABETES MELLITUS [None]
  - TARDIVE DYSKINESIA [None]
